FAERS Safety Report 20985567 (Version 1)
Quarter: 2022Q2

REPORT INFORMATION
  Report Type: Spontaneous
  Country: US (occurrence: US)
  Receive Date: 20220621
  Receipt Date: 20220621
  Transmission Date: 20220721
  Serious: No
  Sender: FDA-Public Use
  Company Number: US-GSKCCFUS-Case-01411029_AE-81232

PATIENT
  Age: 57 Year
  Sex: Female

DRUGS (1)
  1. BENLYSTA [Suspect]
     Active Substance: BELIMUMAB
     Indication: Product used for unknown indication
     Dosage: UNK ONCE A MONTH
     Route: 042
     Dates: start: 202110

REACTIONS (2)
  - Groin pain [Unknown]
  - Vertigo [Unknown]

NARRATIVE: CASE EVENT DATE: 20211201
